FAERS Safety Report 7249501-1 (Version None)
Quarter: 2011Q1

REPORT INFORMATION
  Report Type: 
  Country: None (occurrence: None)
  Receive Date: 20110128
  Receipt Date: 20101206
  Transmission Date: 20110831
  Serious: Yes (Hospitalization, Other)
  Sender: FDA-Public Use
  Company Number: US-BAYER-200932087NA

PATIENT
  Sex: Female
  Weight: 73 kg

DRUGS (18)
  1. YAZ [Suspect]
     Indication: PRODUCT USED FOR UNKNOWN INDICATION
     Route: 048
  2. YASMIN [Suspect]
     Indication: PRODUCT USED FOR UNKNOWN INDICATION
     Route: 048
     Dates: start: 20050101, end: 20060615
  3. NITROGLYCERIN [Concomitant]
     Indication: CHEST PAIN
     Dosage: 0.4 MG, UNK
     Route: 060
  4. NSAID'S [Concomitant]
  5. NARCAN [Concomitant]
  6. WARFARIN SODIUM [Concomitant]
     Dosage: 10 MG, UNK
     Route: 048
  7. YASMIN [Suspect]
     Dosage: UNK
     Route: 048
     Dates: start: 20050101, end: 20060101
  8. NSAID'S [Concomitant]
     Indication: ANALGESIC THERAPY
  9. DILAUDID [Concomitant]
     Dosage: 1 MG, UNK
  10. ACETAMINOPHEN [Concomitant]
     Dosage: 650 MG, UNK
  11. XANAX [Concomitant]
     Dosage: 0.25 MG, UNK
  12. ZOFRAN [Concomitant]
     Indication: NAUSEA
     Dosage: 4 MG, UNK
     Route: 048
  13. ZOFRAN [Concomitant]
     Indication: VOMITING
  14. NSAID'S [Concomitant]
  15. OXYCODONE HCL AND ACETAMINOPHEN [Concomitant]
     Indication: PAIN
  16. MAGNESIUM CHLORIDE [Concomitant]
     Indication: PAIN
     Dosage: 30 ML, QD
  17. MORPHINE [Concomitant]
     Indication: PAIN
     Dosage: 3 MG, UNK
     Route: 040
  18. COLACE [Concomitant]
     Dosage: UNK UNK, BID

REACTIONS (7)
  - OEDEMA PERIPHERAL [None]
  - THROMBOPHLEBITIS [None]
  - MUSCULOSKELETAL PAIN [None]
  - ANXIETY [None]
  - PAIN IN EXTREMITY [None]
  - ARTERIAL THROMBOSIS LIMB [None]
  - DEEP VEIN THROMBOSIS [None]
